FAERS Safety Report 8219557-8 (Version None)
Quarter: 2012Q1

REPORT INFORMATION
  Report Type: 
  Country: None (occurrence: None)
  Receive Date: 20120319
  Receipt Date: 20120307
  Transmission Date: 20120608
  Serious: Yes (Hospitalization, Other)
  Sender: FDA-Public Use
  Company Number: US-BRISTOL-MYERS SQUIBB COMPANY-16386518

PATIENT
  Age: 40 Year
  Sex: Female

DRUGS (3)
  1. ERBITUX [Suspect]
     Indication: BILE DUCT CANCER
     Dosage: DURATION:ABOUT 2 TO 3 MONTHS
  2. ADRIAMYCIN PFS [Suspect]
     Indication: BILE DUCT CANCER
  3. GEMCITABINE [Suspect]
     Indication: BILE DUCT CANCER

REACTIONS (4)
  - MALIGNANT HYPERTENSION [None]
  - HYDROCEPHALUS [None]
  - NEPHROTIC SYNDROME [None]
  - DRUG DOSE OMISSION [None]
